FAERS Safety Report 8509933-8 (Version None)
Quarter: 2012Q3

REPORT INFORMATION
  Report Type: 
  Country: None (occurrence: None)
  Receive Date: 20120713
  Receipt Date: 20120711
  Transmission Date: 20120928
  Serious: Yes (Other)
  Sender: FDA-Public Use
  Company Number: BR-MSD-1207BRA002396

PATIENT

DRUGS (5)
  1. FENTANYL [Concomitant]
  2. DORMONID TABLETS [Concomitant]
  3. DIPRIVAN [Concomitant]
  4. ROCURONIUM BROMIDE [Suspect]
     Indication: ANAESTHESIA
  5. ULTIVA [Concomitant]

REACTIONS (3)
  - BRADYCARDIA [None]
  - HYPERTENSIVE CRISIS [None]
  - RASH [None]
